FAERS Safety Report 13072483 (Version 2)
Quarter: 2017Q1

REPORT INFORMATION
  Report Type: Report from Study
  Country: PL (occurrence: PL)
  Receive Date: 20161229
  Receipt Date: 20170112
  Transmission Date: 20170428
  Serious: Yes (Death, Hospitalization, Other)
  Sender: FDA-Public Use
  Company Number: PL-BAXTER-2016BAX065541

PATIENT
  Age: 76 Year
  Sex: Male
  Weight: 98 kg

DRUGS (9)
  1. NAVELBINE [Suspect]
     Active Substance: VINORELBINE TARTRATE
     Dosage: LAST DOSE PRIOR TO EVENT, CYCLE 01 (CYCLICAL 1/21)
     Route: 048
     Dates: start: 20160821
  2. LOKREN [Concomitant]
     Active Substance: BETAXOLOL HYDROCHLORIDE
     Indication: HYPERTENSION
     Dosage: UNKNOWN FORMULATION
     Route: 048
     Dates: start: 1996
  3. DIUVER [Concomitant]
     Active Substance: TORSEMIDE
     Indication: HYPERTENSION
     Dosage: 1 TABLET DAILY
     Route: 048
     Dates: start: 1996, end: 20160831
  4. AMLOZEK [Concomitant]
     Active Substance: AMLODIPINE BESYLATE
     Route: 065
     Dates: start: 2016
  5. 0.9% SODIUM CHLORIDE [Suspect]
     Active Substance: SODIUM CHLORIDE
     Indication: GENERAL PHYSICAL HEALTH DETERIORATION
     Route: 042
     Dates: start: 20160824
  6. NAVELBINE [Suspect]
     Active Substance: VINORELBINE TARTRATE
     Indication: NON-SMALL CELL LUNG CANCER
     Dosage: CYCLICAL 1/21
     Route: 048
     Dates: start: 20160810
  7. APO-DOXAN [Concomitant]
     Indication: BENIGN PROSTATIC HYPERPLASIA
     Dosage: UNKNOWN FORMULATION
     Route: 048
     Dates: start: 1996
  8. AMLOZEK [Concomitant]
     Active Substance: AMLODIPINE BESYLATE
     Indication: HYPERTENSION
     Dosage: UNKNOWN FORMULATION
     Route: 048
     Dates: start: 1996
  9. MILURIT [Concomitant]
     Active Substance: ALLOPURINOL
     Indication: BENIGN PROSTATIC HYPERPLASIA
     Dosage: UNKNOWN FORMULATION
     Route: 048
     Dates: start: 2016

REACTIONS (9)
  - Disease progression [Fatal]
  - Respiratory failure [Fatal]
  - Altered state of consciousness [Unknown]
  - General physical health deterioration [Fatal]
  - Pneumonia [Fatal]
  - Metastases to bone [Fatal]
  - Cardiopulmonary failure [Fatal]
  - Renal failure [Fatal]
  - Constipation [Recovering/Resolving]

NARRATIVE: CASE EVENT DATE: 201608
